FAERS Safety Report 9669827 (Version 8)
Quarter: 2014Q1

REPORT INFORMATION
  Report Type: Spontaneous
  Country: JP (occurrence: JP)
  Receive Date: 20131105
  Receipt Date: 20140305
  Transmission Date: 20141002
  Serious: Yes (Hospitalization, Other)
  Sender: FDA-Public Use
  Company Number: JP-PFIZER INC-2013315234

PATIENT
  Sex: Male
  Weight: 53 kg

DRUGS (9)
  1. LYRICA [Suspect]
     Indication: POST HERPETIC NEURALGIA
     Dosage: UNK
     Route: 048
     Dates: start: 20130802, end: 20131003
  2. CYMBALTA [Suspect]
     Indication: POST HERPETIC NEURALGIA
     Dosage: UNK
     Route: 048
  3. ANTEBATE [Suspect]
  4. ZYPREXA [Suspect]
     Route: 048
  5. MEDROL [Concomitant]
     Indication: IMMUNOSUPPRESSANT DRUG THERAPY
     Dosage: UNK
     Route: 048
  6. CELLCEPT [Concomitant]
     Indication: IMMUNOSUPPRESSANT DRUG THERAPY
     Dosage: UNK
  7. GRACEPTOR [Concomitant]
     Indication: IMMUNOSUPPRESSANT DRUG THERAPY
     Dosage: UNK
  8. ECLAR [Concomitant]
  9. EURODIN [Concomitant]

REACTIONS (57)
  - Convulsion [Not Recovered/Not Resolved]
  - Shock [Unknown]
  - Cardiac disorder [Unknown]
  - Depressed level of consciousness [Unknown]
  - Altered state of consciousness [Unknown]
  - Paralysis [Unknown]
  - Suicidal ideation [Unknown]
  - Mania [Unknown]
  - Bipolar I disorder [Unknown]
  - Injury [Unknown]
  - Anaphylactic reaction [Unknown]
  - Angioedema [Unknown]
  - Urinary retention [Unknown]
  - Loss of consciousness [Unknown]
  - Rib fracture [Not Recovered/Not Resolved]
  - Persecutory delusion [Unknown]
  - Drug withdrawal syndrome [Unknown]
  - Hypoaesthesia [Not Recovered/Not Resolved]
  - Gait disturbance [Unknown]
  - Nausea [Unknown]
  - Urine output decreased [Unknown]
  - Fatigue [Unknown]
  - Malaise [Unknown]
  - Stomatitis [Unknown]
  - Cold sweat [Unknown]
  - Feeling abnormal [Unknown]
  - Swelling face [Not Recovered/Not Resolved]
  - Erythema [Not Recovered/Not Resolved]
  - Eyelid function disorder [Unknown]
  - Dystonia [Not Recovered/Not Resolved]
  - Skin exfoliation [Not Recovered/Not Resolved]
  - Skin haemorrhage [Unknown]
  - Depression [Unknown]
  - Anxiety [Unknown]
  - Eyelid ptosis [Unknown]
  - Hyperhidrosis [Unknown]
  - Skin discolouration [Unknown]
  - Rash [Unknown]
  - Burning sensation [Unknown]
  - Pain [Unknown]
  - Micturition disorder [Unknown]
  - Abnormal behaviour [Unknown]
  - Gynaecomastia [Recovering/Resolving]
  - Amnesia [Unknown]
  - Depersonalisation [Unknown]
  - Speech disorder [Unknown]
  - Thrombosis [Unknown]
  - Pain in extremity [Unknown]
  - Insomnia [Unknown]
  - Irritability [Unknown]
  - Dyskinesia [Unknown]
  - Musculoskeletal stiffness [Unknown]
  - Muscle atrophy [Unknown]
  - Oedema [Not Recovered/Not Resolved]
  - Confusional state [Not Recovered/Not Resolved]
  - Euphoric mood [Not Recovered/Not Resolved]
  - Headache [Unknown]
